FAERS Safety Report 9389601 (Version 1)
Quarter: 2013Q3

REPORT INFORMATION
  Report Type: Spontaneous
  Country: US (occurrence: US)
  Receive Date: 20130708
  Receipt Date: 20130708
  Transmission Date: 20140515
  Serious: No
  Sender: FDA-Public Use
  Company Number: US-AMGEN-USASP2013042050

PATIENT
  Age: 63 Year
  Sex: Female
  Weight: 96.15 kg

DRUGS (10)
  1. ENBREL [Suspect]
     Indication: RHEUMATOID ARTHRITIS
     Dosage: UNK
     Route: 065
     Dates: start: 200904, end: 201105
  2. HUMIRA [Suspect]
     Indication: RHEUMATOID ARTHRITIS
     Dosage: 40 MG, 1 IN 2 WK
     Dates: start: 2010, end: 2011
  3. CIMZIA [Suspect]
     Indication: RHEUMATOID ARTHRITIS
     Dosage: UNK
     Dates: start: 201202, end: 2013
  4. CALCIUM +D3 [Concomitant]
     Dosage: UNK
  5. ESTRADIOL [Concomitant]
     Dosage: UNK
  6. MOTRIN [Concomitant]
     Dosage: UNK
  7. MULTIVITAMINS, PLAIN [Concomitant]
     Dosage: UNK
  8. PREDNISONE [Concomitant]
     Dosage: UNK
  9. PROMETRIUM                         /00110701/ [Concomitant]
     Dosage: UNK
  10. VITAMIN D3 [Concomitant]
     Dosage: UNK

REACTIONS (4)
  - Adverse reaction [Unknown]
  - Vomiting [Unknown]
  - Psoriatic arthropathy [Unknown]
  - Diarrhoea [Unknown]
